FAERS Safety Report 4367552-1 (Version None)
Quarter: 2004Q2

REPORT INFORMATION
  Report Type: 
  Country: None (occurrence: None)
  Receive Date: 20040601
  Receipt Date: 20040521
  Transmission Date: 20050107
  Serious: Yes (Hospitalization)
  Sender: FDA-Public Use
  Company Number: JP-MERCK-0405USA01802

PATIENT
  Age: 80 Year
  Sex: Male

DRUGS (3)
  1. AMLODIPINE BESYLATE [Concomitant]
     Route: 065
     Dates: start: 20031001
  2. COZAAR [Suspect]
     Indication: HYPERTENSION
     Route: 048
     Dates: start: 20020501, end: 20030801
  3. COZAAR [Suspect]
     Route: 048
     Dates: start: 20030901, end: 20040424

REACTIONS (5)
  - DEHYDRATION [None]
  - DIFFICULTY IN WALKING [None]
  - HYPOAESTHESIA [None]
  - OEDEMA [None]
  - RHABDOMYOLYSIS [None]
